FAERS Safety Report 25368283 (Version 1)
Quarter: 2025Q2

REPORT INFORMATION
  Report Type: Spontaneous
  Country: CO (occurrence: CO)
  Receive Date: 20250528
  Receipt Date: 20250528
  Transmission Date: 20250717
  Serious: Yes (Other)
  Sender: SANDOZ
  Company Number: CO-002147023-NVSC2024CO227714

PATIENT
  Sex: Female
  Weight: 68 kg

DRUGS (4)
  1. FULVESTRANT [Suspect]
     Active Substance: FULVESTRANT
     Indication: Product used for unknown indication
     Route: 065
     Dates: end: 20250512
  2. KISQALI [Suspect]
     Active Substance: RIBOCICLIB SUCCINATE
     Indication: Breast cancer metastatic
     Dosage: 600 MG, QD
     Route: 048
     Dates: start: 20221001, end: 20250512
  3. KISQALI [Suspect]
     Active Substance: RIBOCICLIB SUCCINATE
     Indication: Hormone receptor positive HER2 negative breast cancer
     Dosage: 600 MG, QD
     Route: 048
     Dates: start: 20191024
  4. CALCIUM [Concomitant]
     Active Substance: CALCIUM
     Indication: Product used for unknown indication
     Dosage: UNK, Q3MO
     Route: 042

REACTIONS (8)
  - Metastasis [Unknown]
  - Neutropenia [Unknown]
  - Tuberculosis [Unknown]
  - Laboratory test abnormal [Unknown]
  - Chills [Unknown]
  - Dizziness [Unknown]
  - Asthenia [Unknown]
  - Drug ineffective [Unknown]
